FAERS Safety Report 14970961 (Version 2)
Quarter: 2018Q3

REPORT INFORMATION
  Report Type: Spontaneous
  Country: US (occurrence: US)
  Receive Date: 20180604
  Receipt Date: 20180919
  Transmission Date: 20181010
  Serious: No
  Sender: FDA-Public Use
  Company Number: US-PFIZER INC-2018220231

PATIENT
  Age: 82 Year
  Sex: Female

DRUGS (13)
  1. TIMOLOL MALEATE. [Concomitant]
     Active Substance: TIMOLOL MALEATE
     Dosage: 2 GTT, 2X/DAY (ONE DROP EACH EYE MORNING AND EVENING)
  2. XELJANZ [Suspect]
     Active Substance: TOFACITINIB CITRATE
     Indication: PAIN
     Dosage: 5 MG, 2X/DAY (ONE IN THE MORNING, ONE IN THE EVENING)
     Dates: start: 2017
  3. XELJANZ [Suspect]
     Active Substance: TOFACITINIB CITRATE
     Indication: ARTHRITIS
  4. NEXIUM [ESOMEPRAZOLE MAGNESIUM] [Concomitant]
     Dosage: 40 MG, 1X/DAY (TWO 20 MG IN THE MORNING)
  5. AZOPT [Concomitant]
     Active Substance: BRINZOLAMIDE
     Dosage: 2 GTT, 2X/DAY (ONE DROP EACH EYE MORNING AND EVENING)
  6. ASPIRIN [ACETYLSALICYLIC ACID] [Concomitant]
     Active Substance: ASPIRIN
     Dosage: 81 MG, 1X/DAY (EVENING)
  7. VALACYCLOVIR [Concomitant]
     Active Substance: VALACYCLOVIR HYDROCHLORIDE
     Dosage: 500 MG, 1X/DAY (MORNING)
  8. ATORVASTATIN [Concomitant]
     Active Substance: ATORVASTATIN
     Dosage: 20 MG, 1X/DAY (EVENING)
  9. CALCIUM CITRATE WITH VITAMIN D3 [Concomitant]
     Dosage: UNK, 4X/DAY
  10. TYLENOL ARTHRITIS PAIN [Concomitant]
     Active Substance: ACETAMINOPHEN
     Indication: ARTHRITIS
     Dosage: UNK, AS NEEDED
  11. C?TIME [Concomitant]
     Dosage: UNK, 1X/DAY (MORNING)
  12. DILTIAZEM. [Concomitant]
     Active Substance: DILTIAZEM
     Dosage: 180 MG, 1X/DAY (EVENING)
  13. ZYRTEC [Concomitant]
     Active Substance: CETIRIZINE HYDROCHLORIDE
     Dosage: 10 MG, 1X/DAY (MORNING)

REACTIONS (3)
  - Foot deformity [Not Recovered/Not Resolved]
  - Wrist fracture [Unknown]
  - Drug ineffective for unapproved indication [Not Recovered/Not Resolved]

NARRATIVE: CASE EVENT DATE: 2018
